FAERS Safety Report 5456999-8 (Version None)
Quarter: 2007Q3

REPORT INFORMATION
  Report Type: 
  Country: None (occurrence: None)
  Receive Date: 20070918
  Receipt Date: 20070531
  Transmission Date: 20080115
  Serious: Yes (Hospitalization)
  Sender: FDA-Public Use
  Company Number: US-ASTRAZENECA-2006UW27496

PATIENT
  Age: 405 Month
  Sex: Female
  Weight: 97.7 kg

DRUGS (6)
  1. SEROQUEL [Suspect]
     Indication: BIPOLAR DISORDER
     Route: 048
     Dates: start: 20011101
  2. SEROQUEL [Suspect]
     Indication: DEPRESSION
     Route: 048
     Dates: start: 20011101
  3. SEROQUEL [Suspect]
     Indication: POST-TRAUMATIC STRESS DISORDER
     Route: 048
     Dates: start: 20011101
  4. THORAZINE [Concomitant]
     Dates: start: 20000101
  5. TOPAMAX [Concomitant]
  6. EFFEXOR [Concomitant]
     Dosage: 75 MG IN MORNING, 150MG NIGHT

REACTIONS (2)
  - CHEST PAIN [None]
  - DIABETES MELLITUS [None]
